FAERS Safety Report 19620114 (Version 1)
Quarter: 2021Q3

REPORT INFORMATION
  Report Type: Spontaneous
  Country: US (occurrence: US)
  Receive Date: 20210728
  Receipt Date: 20210728
  Transmission Date: 20211014
  Serious: No
  Sender: FDA-Public Use
  Company Number: US-ROCHE-2726884

PATIENT
  Age: 55 Year
  Sex: Male

DRUGS (1)
  1. XELODA [Suspect]
     Active Substance: CAPECITABINE
     Indication: COLON CANCER
     Route: 048
     Dates: start: 202011, end: 202102

REACTIONS (7)
  - Nausea [Unknown]
  - Dry skin [Unknown]
  - Hypoaesthesia oral [Unknown]
  - Paraesthesia [Unknown]
  - Insomnia [Unknown]
  - Palmar-plantar erythrodysaesthesia syndrome [Unknown]
  - Nervousness [Unknown]

NARRATIVE: CASE EVENT DATE: 20201119
